FAERS Safety Report 7168039-3 (Version None)
Quarter: 2010Q4

REPORT INFORMATION
  Report Type: 
  Country: None (occurrence: None)
  Receive Date: 20101216
  Receipt Date: 20101123
  Transmission Date: 20110411
  Serious: No
  Sender: FDA-Public Use
  Company Number: US-PFIZER INC-2010156963

PATIENT

DRUGS (2)
  1. IBUPROFEN [Suspect]
     Dosage: 400MG 3X/DAY
  2. TRAMADOL HYDROCHLORIDE [Suspect]

REACTIONS (1)
  - DRUG INEFFECTIVE [None]
